FAERS Safety Report 13121998 (Version 1)
Quarter: 2017Q1

REPORT INFORMATION
  Report Type: Spontaneous
  Country: US (occurrence: US)
  Receive Date: 20170116
  Receipt Date: 20170116
  Transmission Date: 20170428
  Serious: Yes (Hospitalization, Other)
  Sender: FDA-Public Use
  Company Number: None

PATIENT
  Age: 57 Year
  Sex: Female
  Weight: 89.1 kg

DRUGS (38)
  1. GLIPIZIDE XL (GLUCOTROL XL) [Concomitant]
  2. HYOSCYAMINE. [Concomitant]
     Active Substance: HYOSCYAMINE
  3. PROAIR HFA (ABUTEROL DULFATE) [Concomitant]
  4. ALLEGRA 24HR [Concomitant]
  5. CLONAZEPAM. [Concomitant]
     Active Substance: CLONAZEPAM
  6. ONE TOUCH ULTRA SOFT LANCETS DELICA [Concomitant]
  7. ONE TOUCH ULTRA TEST STRIPS [Concomitant]
  8. PROTONIX (PANTOPRAZOLE SOD DR) [Concomitant]
  9. TOPROL XL (METOPROLOL SUCC ER) [Concomitant]
  10. D ACIDOPHILUS [Concomitant]
  11. POTASSIUM GLUCONATE [Concomitant]
     Active Substance: POTASSIUM GLUCONATE
  12. VITAMIN C W/ROSE HIPS [Concomitant]
  13. ZINC. [Concomitant]
     Active Substance: ZINC
  14. INVOKANA [Suspect]
     Active Substance: CANAGLIFLOZIN
     Indication: DIABETES MELLITUS
     Dosage: ?          QUANTITY:1 TABLET(S);?
     Route: 048
     Dates: start: 20161122, end: 20170102
  15. B-COMPLEX WITH VITAMIN B-12 CALCIUM [Concomitant]
  16. FISH OIL [Concomitant]
     Active Substance: FISH OIL
  17. MAGNESIUM [Concomitant]
     Active Substance: MAGNESIUM
  18. PLAVIX [Concomitant]
     Active Substance: CLOPIDOGREL BISULFATE
  19. RESTASIS 0.5% [Concomitant]
  20. FLAXSEED [Concomitant]
     Active Substance: FLAX SEED
  21. AYGESTIN (NORETHINDRONE) [Concomitant]
  22. BUSPIRON [Concomitant]
     Active Substance: BUSPIRONE HYDROCHLORIDE
  23. CRESTOR [Concomitant]
     Active Substance: ROSUVASTATIN CALCIUM
  24. HYDROCHLOROTHIAZIDE. [Concomitant]
     Active Substance: HYDROCHLOROTHIAZIDE
  25. LOSARTAN POTASSIUM. [Concomitant]
     Active Substance: LOSARTAN POTASSIUM
  26. PRAZOSIN [Concomitant]
     Active Substance: PRAZOSIN
  27. VSL #3 PROBIOTIC [Concomitant]
  28. METOPROLOL SUCC. ER (TOPROL XL) [Concomitant]
  29. NASONEX [Concomitant]
     Active Substance: MOMETASONE FUROATE
  30. NITROQUICK [Concomitant]
     Active Substance: NITROGLYCERIN
  31. ONE TOUCH ULTRA 2 [Concomitant]
  32. PEPSID AC [Concomitant]
  33. BABY ASPIRIN [Concomitant]
     Active Substance: ASPIRIN
  34. BYDUREON [Concomitant]
     Active Substance: EXENATIDE
  35. CITALOPRAM HBR (CELEXA) [Concomitant]
  36. EPIPEN [Concomitant]
     Active Substance: EPINEPHRINE
  37. PULMICORT FLEXHALER (BUDESONIDE INHALATION POWDER) [Concomitant]
  38. FIBER GUMMIES [Concomitant]

REACTIONS (11)
  - Nausea [None]
  - Rash [None]
  - Hypoaesthesia [None]
  - Pollakiuria [None]
  - Syncope [None]
  - Stomatitis [None]
  - Hypoaesthesia oral [None]
  - Thirst [None]
  - Fungal infection [None]
  - Dizziness [None]
  - Diarrhoea [None]

NARRATIVE: CASE EVENT DATE: 20161123
